FAERS Safety Report 19614968 (Version 1)
Quarter: 2021Q3

REPORT INFORMATION
  Report Type: Report from Study
  Country: US (occurrence: US)
  Receive Date: 20210727
  Receipt Date: 20210727
  Transmission Date: 20211014
  Serious: Yes (Hospitalization)
  Sender: FDA-Public Use
  Company Number: US-TAKEDA-US201930163

PATIENT
  Sex: Female

DRUGS (1)
  1. HUMAN IMMUNOGLOBULIN; HYALURONIDASE [Suspect]
     Active Substance: HUMAN IMMUNOGLOBULIN G\HYALURONIDASE RECOMBINANT HUMAN
     Indication: SELECTIVE IGG SUBCLASS DEFICIENCY
     Route: 065

REACTIONS (7)
  - Malaise [Unknown]
  - Immunoglobulins decreased [Unknown]
  - Infusion site reaction [Unknown]
  - Colitis [Unknown]
  - Hypoaesthesia [Unknown]
  - Sinus disorder [Unknown]
  - Infusion site pain [Unknown]
